FAERS Safety Report 20981448 (Version 2)
Quarter: 2022Q2

REPORT INFORMATION
  Report Type: Spontaneous
  Country: ZA (occurrence: ZA)
  Receive Date: 20220620
  Receipt Date: 20220627
  Transmission Date: 20220721
  Serious: Yes (Other)
  Sender: FDA-Public Use
  Company Number: ZA-GLAXOSMITHKLINE-ZA2022EME093267

PATIENT

DRUGS (4)
  1. FLUTICASONE FUROATE\VILANTEROL TRIFENATATE [Suspect]
     Active Substance: FLUTICASONE FUROATE\VILANTEROL TRIFENATATE
     Indication: Pulmonary function test
     Dosage: 92/22 MICROGRAMS
     Dates: start: 202002
  2. FLUTICASONE FUROATE\VILANTEROL TRIFENATATE [Suspect]
     Active Substance: FLUTICASONE FUROATE\VILANTEROL TRIFENATATE
     Indication: Pulmonary function test
     Dosage: UNK
     Dates: start: 202002
  3. PFIZER-BIONTECH COVID-19 VACCINE [Suspect]
     Active Substance: TOZINAMERAN
     Indication: COVID-19 prophylaxis
     Dosage: UNK
     Dates: start: 20211020
  4. PFIZER-BIONTECH COVID-19 VACCINE [Suspect]
     Active Substance: TOZINAMERAN
     Dosage: UNK
     Dates: start: 20220108

REACTIONS (8)
  - Thyroid neoplasm [Unknown]
  - Hypothyroidism [Unknown]
  - Visual impairment [Unknown]
  - Muscular weakness [Unknown]
  - Dyspnoea [Unknown]
  - Palpitations [Unknown]
  - COVID-19 [Unknown]
  - Product use in unapproved indication [Unknown]
